FAERS Safety Report 8436204-0 (Version None)
Quarter: 2012Q2

REPORT INFORMATION
  Report Type: 
  Country: None (occurrence: None)
  Receive Date: 20120614
  Receipt Date: 20120607
  Transmission Date: 20120825
  Serious: Yes (Hospitalization)
  Sender: FDA-Public Use
  Company Number: US-FRI-1000029774

PATIENT
  Age: 46 Year
  Sex: Female

DRUGS (16)
  1. DALIRESP [Suspect]
     Dosage: 500 MCG
     Route: 048
     Dates: start: 20120422
  2. BENTYL [Concomitant]
  3. LIDOCAINE [Concomitant]
     Indication: PAIN
  4. NORCO [Concomitant]
     Dosage: 10/325 MG
  5. DALIRESP [Suspect]
     Indication: CHRONIC OBSTRUCTIVE PULMONARY DISEASE
     Dosage: 500 MCG
     Dates: start: 20111101, end: 20120411
  6. PATANOL [Concomitant]
  7. SOMA [Suspect]
     Dates: end: 20120405
  8. METOPROLOL TARTRATE [Concomitant]
     Indication: BLOOD PRESSURE INCREASED
  9. SPIRIVA [Concomitant]
  10. VENTOLIN HFA [Concomitant]
  11. XANAX [Suspect]
     Dates: end: 20120405
  12. NASONEX [Concomitant]
  13. NEXIUM [Concomitant]
  14. ESTRACE [Concomitant]
     Indication: HORMONE REPLACEMENT THERAPY
  15. OXYCONTIN [Suspect]
     Dates: end: 20120405
  16. AMLODIPINE [Concomitant]
     Indication: HYPERTENSION

REACTIONS (14)
  - VOMITING [None]
  - DELUSION [None]
  - DECREASED APPETITE [None]
  - PALPITATIONS [None]
  - PAIN [None]
  - NAUSEA [None]
  - ANXIETY [None]
  - MOOD ALTERED [None]
  - PANIC ATTACK [None]
  - DYSPNOEA [None]
  - ABDOMINAL PAIN [None]
  - INSOMNIA [None]
  - TREMOR [None]
  - BRUXISM [None]
